FAERS Safety Report 25251080 (Version 1)
Quarter: 2025Q2

REPORT INFORMATION
  Report Type: Spontaneous
  Country: CN (occurrence: CN)
  Receive Date: 20250429
  Receipt Date: 20250429
  Transmission Date: 20250717
  Serious: Yes (Life-Threatening, Other)
  Sender: BAYER HEALTHCARE PHARMACEUTICALS INC.
  Company Number: CN-BAYER-2025A057376

PATIENT
  Age: 49 Year
  Sex: Male
  Weight: 90 kg

DRUGS (2)
  1. ULTRAVIST [Suspect]
     Active Substance: IOPROMIDE
     Indication: Computerised tomogram
     Route: 042
     Dates: start: 20250411, end: 20250411
  2. ULTRAVIST [Suspect]
     Active Substance: IOPROMIDE
     Indication: Neoplasm

REACTIONS (7)
  - Dizziness [Recovered/Resolved]
  - Oropharyngeal discomfort [Recovered/Resolved]
  - Flushing [Recovered/Resolved]
  - Hyperhidrosis [Recovered/Resolved]
  - Blood pressure diastolic decreased [Recovered/Resolved]
  - Oxygen saturation decreased [Recovered/Resolved]
  - Heart rate decreased [Recovered/Resolved]

NARRATIVE: CASE EVENT DATE: 20250411
